FAERS Safety Report 13037308 (Version 1)
Quarter: 2016Q4

REPORT INFORMATION
  Report Type: Report from Study
  Country: CN (occurrence: CN)
  Receive Date: 20161216
  Receipt Date: 20161216
  Transmission Date: 20170207
  Serious: Yes (Hospitalization)
  Sender: FDA-Public Use
  Company Number: CN-GLAXOSMITHKLINE-CN2015112745

PATIENT
  Age: 52 Year
  Sex: Female
  Weight: 60.9 kg

DRUGS (5)
  1. PRANOPROFEN EYE DROPS [Concomitant]
     Indication: CONJUNCTIVITIS
     Dosage: 1 GTT, QID
     Route: 047
     Dates: start: 20150727, end: 20150803
  2. BUPROPION HYDROCHLORIDE XL [Suspect]
     Active Substance: BUPROPION HYDROCHLORIDE
     Indication: DEPRESSION
     Dosage: UNK
     Route: 048
     Dates: start: 20150727
  3. SHARP LOWE EYE DROPS (ANTIVIRALS NOS) [Concomitant]
     Indication: CONJUNCTIVITIS
     Route: 047
     Dates: start: 20150727, end: 20150803
  4. CALCIUM DOBESILATE DISPERSIBLE TABLETS [Concomitant]
     Indication: CONJUNCTIVITIS
     Dosage: 1 DF, TID
     Route: 048
     Dates: start: 20150727, end: 20150803
  5. GENTAMICIN. [Concomitant]
     Active Substance: GENTAMICIN
     Indication: CONJUNCTIVITIS
     Dosage: 1 GTT, TID
     Route: 047
     Dates: start: 20150727, end: 20150803

REACTIONS (1)
  - Conjunctivitis [Recovered/Resolved]

NARRATIVE: CASE EVENT DATE: 20150801
